FAERS Safety Report 9919276 (Version 2)
Quarter: 2014Q4

REPORT INFORMATION
  Report Type: Spontaneous
  Country: SE (occurrence: SE)
  Receive Date: 20140224
  Receipt Date: 20141212
  Transmission Date: 20150529
  Serious: Yes (Hospitalization, Other)
  Sender: FDA-Public Use
  Company Number: SE-TEVA-462757ISR

PATIENT
  Age: 42 Year
  Sex: Female

DRUGS (2)
  1. SOBRIL [Concomitant]
     Active Substance: OXAZEPAM
  2. FLUOXETINE [Suspect]
     Active Substance: FLUOXETINE\FLUOXETINE HYDROCHLORIDE
     Indication: PANIC DISORDER
     Dosage: 1/4 TABLETT, 1/2 EFTER 5 DGS, 1 TABLETT EFTER 14 DGR
     Dates: start: 20140102, end: 20140120

REACTIONS (7)
  - Chest pain [Not Recovered/Not Resolved]
  - Heart rate irregular [Not Recovered/Not Resolved]
  - Drug withdrawal syndrome [Not Recovered/Not Resolved]
  - Tachycardia [Not Recovered/Not Resolved]
  - Heart rate increased [Not Recovered/Not Resolved]
  - Extrasystoles [Not Recovered/Not Resolved]
  - Burning sensation [Not Recovered/Not Resolved]

NARRATIVE: CASE EVENT DATE: 201401
